FAERS Safety Report 6902910-X (Version None)
Quarter: 2010Q3

REPORT INFORMATION
  Report Type: 
  Country: None (occurrence: None)
  Receive Date: 20100803
  Receipt Date: 20080628
  Transmission Date: 20110219
  Serious: No
  Sender: FDA-Public Use
  Company Number: US-PFIZER INC-2008037174

PATIENT
  Sex: Female
  Weight: 106.6 kg

DRUGS (8)
  1. LYRICA [Suspect]
     Indication: FIBROMYALGIA
     Route: 048
     Dates: start: 20080321, end: 20080101
  2. PREDNISONE TAB [Suspect]
  3. ALBUTEROL [Concomitant]
  4. SALICYLATES [Concomitant]
  5. PEPCID [Concomitant]
  6. OMEPRAZOLE [Concomitant]
  7. MONTELUKAST SODIUM [Concomitant]
  8. NASALCORT [Concomitant]

REACTIONS (3)
  - ANXIETY [None]
  - INSOMNIA [None]
  - SOMNOLENCE [None]
